FAERS Safety Report 12584300 (Version 3)
Quarter: 2016Q3

REPORT INFORMATION
  Report Type: Report from Study
  Country: GB (occurrence: GB)
  Receive Date: 20160722
  Receipt Date: 20160811
  Transmission Date: 20161109
  Serious: Yes (Hospitalization)
  Sender: FDA-Public Use
  Company Number: GB-PFIZER INC-2016349515

PATIENT
  Age: 56 Year
  Sex: Male
  Weight: 76.5 kg

DRUGS (5)
  1. DEXAMETHASONE. [Concomitant]
     Active Substance: DEXAMETHASONE
     Indication: PROPHYLAXIS
     Dosage: 8 MG, 2X/DAY
     Route: 042
     Dates: start: 20160715
  2. AXITINIB [Suspect]
     Active Substance: AXITINIB
     Indication: RENAL CELL CARCINOMA
     Dosage: UNK, 2X/DAY
     Route: 048
     Dates: start: 20160321
  3. MSB0010718C [Suspect]
     Active Substance: AVELUMAB
     Indication: RENAL CELL CARCINOMA
     Dosage: CYCLIC (EVERY 2 WEEKS)
     Route: 042
     Dates: start: 20160321
  4. BISOPROLOL [Concomitant]
     Active Substance: BISOPROLOL
     Indication: EJECTION FRACTION DECREASED
     Dosage: 1.25 G, UNK
     Route: 048
     Dates: start: 20160715
  5. RAMIPRIL. [Concomitant]
     Active Substance: RAMIPRIL
     Indication: EJECTION FRACTION DECREASED
     Dosage: 1.25 G, UNK
     Route: 048
     Dates: start: 20160715

REACTIONS (2)
  - Palpitations [Recovering/Resolving]
  - Dyspnoea [Recovering/Resolving]

NARRATIVE: CASE EVENT DATE: 20160715
